FAERS Safety Report 6671245-5 (Version None)
Quarter: 2010Q2

REPORT INFORMATION
  Report Type: 
  Country: None (occurrence: None)
  Receive Date: 20100406
  Receipt Date: 20100406
  Transmission Date: 20101027
  Serious: Yes (Other)
  Sender: FDA-Public Use
  Company Number: None

PATIENT
  Age: 70 Year
  Sex: Male
  Weight: 53.5244 kg

DRUGS (1)
  1. FENTANYL-25 [Suspect]
     Indication: PAIN
     Dosage: 1 PATCH EVERY 3 DAYS
     Route: 062
     Dates: start: 20100226

REACTIONS (4)
  - MALAISE [None]
  - NAUSEA [None]
  - VISION BLURRED [None]
  - VOMITING [None]
